FAERS Safety Report 15400082 (Version 8)
Quarter: 2018Q4

REPORT INFORMATION
  Report Type: Report from Study
  Country: CA (occurrence: CA)
  Receive Date: 20180919
  Receipt Date: 20181009
  Transmission Date: 20190204
  Serious: Yes (Other)
  Sender: FDA-Public Use
  Company Number: CA-BIOGEN-2018BI00631322

PATIENT
  Age: 45 Year
  Sex: Female

DRUGS (2)
  1. TYSABRI [Suspect]
     Active Substance: NATALIZUMAB
     Indication: MULTIPLE SCLEROSIS
     Dosage: INFUSED FOR OVER 1 HOUR
     Route: 042
     Dates: start: 20160504, end: 20180921
  2. TYSABRI [Suspect]
     Active Substance: NATALIZUMAB
     Dosage: INFUSED FOR OVER 1 HOUR
     Route: 042
     Dates: start: 201809

REACTIONS (28)
  - Arthritis [Not Recovered/Not Resolved]
  - Cellulitis [Unknown]
  - Feeling hot [Unknown]
  - Hemianaesthesia [Unknown]
  - Muscle tightness [Unknown]
  - Phlebitis [Unknown]
  - Infusion site mass [Unknown]
  - Oedema peripheral [Not Recovered/Not Resolved]
  - Headache [Not Recovered/Not Resolved]
  - Hypoaesthesia [Not Recovered/Not Resolved]
  - Hypertonic bladder [Not Recovered/Not Resolved]
  - Musculoskeletal disorder [Unknown]
  - Skin discolouration [Not Recovered/Not Resolved]
  - Diarrhoea [Unknown]
  - Skin discolouration [Unknown]
  - Infusion site bruising [Unknown]
  - Arthralgia [Unknown]
  - Fatigue [Not Recovered/Not Resolved]
  - Erythema [Unknown]
  - Arthritis bacterial [Unknown]
  - Osteitis [Not Recovered/Not Resolved]
  - Pain in extremity [Unknown]
  - Genital herpes [Recovered/Resolved]
  - Contusion [Unknown]
  - Paraesthesia [Not Recovered/Not Resolved]
  - Synovitis [Unknown]
  - Tendonitis [Unknown]
  - Pain in extremity [Unknown]

NARRATIVE: CASE EVENT DATE: 20180905
